FAERS Safety Report 10403286 (Version 2)
Quarter: 2014Q3

REPORT INFORMATION
  Report Type: Spontaneous
  Country: AU (occurrence: AU)
  Receive Date: 20140822
  Receipt Date: 20140916
  Transmission Date: 20150326
  Serious: No
  Sender: FDA-Public Use
  Company Number: AU-CELGENEUS-008-21660-14082456

PATIENT
  Sex: Male
  Weight: 62 kg

DRUGS (1)
  1. ABRAXANE [Suspect]
     Active Substance: PACLITAXEL
     Indication: PANCREATIC CARCINOMA METASTATIC
     Route: 041

REACTIONS (1)
  - Pancreatic carcinoma metastatic [Unknown]
